FAERS Safety Report 23420623 (Version 3)
Quarter: 2024Q3

REPORT INFORMATION
  Report Type: Spontaneous
  Country: DE (occurrence: DE)
  Receive Date: 20240119
  Receipt Date: 20240722
  Transmission Date: 20241016
  Serious: Yes (Death)
  Sender: AMGEN
  Company Number: DE-SEATTLE GENETICS-2024SGN00160

PATIENT
  Age: 42 Year
  Sex: Female

DRUGS (6)
  1. TRASTUZUMAB [Suspect]
     Active Substance: TRASTUZUMAB
     Indication: HER2 positive breast cancer
     Dosage: UNK
     Route: 065
     Dates: start: 202107, end: 202212
  2. TRASTUZUMAB [Suspect]
     Active Substance: TRASTUZUMAB
     Indication: Breast cancer metastatic
  3. CAPECITABINE [Suspect]
     Active Substance: CAPECITABINE
     Indication: HER2 positive breast cancer
     Dosage: UNK
     Route: 065
     Dates: start: 202107, end: 202212
  4. CAPECITABINE [Suspect]
     Active Substance: CAPECITABINE
     Indication: Breast cancer metastatic
  5. TUKYSA [Suspect]
     Active Substance: TUCATINIB
     Indication: HER2 positive breast cancer
     Dosage: UNK
     Route: 065
     Dates: start: 202107, end: 202212
  6. TUKYSA [Suspect]
     Active Substance: TUCATINIB
     Indication: Breast cancer metastatic

REACTIONS (2)
  - Breast cancer metastatic [Fatal]
  - HER2 positive breast cancer [Fatal]
